FAERS Safety Report 7061710-3 (Version None)
Quarter: 2010Q4

REPORT INFORMATION
  Report Type: 
  Country: None (occurrence: None)
  Receive Date: 20101026
  Receipt Date: 20101019
  Transmission Date: 20110411
  Serious: Yes (Death)
  Sender: FDA-Public Use
  Company Number: US-JNJCH-2008001172

PATIENT
  Age: 18 Year
  Sex: Male

DRUGS (2)
  1. DEXTROMETHORPHAN [Suspect]
     Dosage: TEXT:UNSPECIFIED
     Route: 048
  2. QUETIAPINE [Suspect]
     Dosage: TEXT:UNSPECIFIED
     Route: 048

REACTIONS (2)
  - COMPLETED SUICIDE [None]
  - DRUG TOXICITY [None]
